FAERS Safety Report 5509091-8 (Version None)
Quarter: 2007Q4

REPORT INFORMATION
  Report Type: 
  Country: None (occurrence: None)
  Receive Date: 20071107
  Receipt Date: 20071029
  Transmission Date: 20080405
  Serious: Yes (Hospitalization)
  Sender: FDA-Public Use
  Company Number: FR-GENENTECH-250462

PATIENT
  Sex: Male
  Weight: 73 kg

DRUGS (5)
  1. RITUXIMAB [Suspect]
     Indication: B-CELL LYMPHOMA
     Dosage: 690 MG, UNK
     Route: 042
     Dates: start: 20060707
  2. CYCLOPHOSPHAMIDE [Suspect]
     Indication: B-CELL LYMPHOMA
     Dosage: 1400 MG, UNK
     Route: 042
     Dates: start: 20060707
  3. DOXORUBICIN HCL [Suspect]
     Indication: B-CELL LYMPHOMA
     Dosage: 92 MG, UNK
     Route: 042
     Dates: start: 20060707
  4. VINCRISTINE [Suspect]
     Indication: B-CELL LYMPHOMA
     Dosage: 2 MG, UNK
     Route: 042
     Dates: start: 20060707
  5. PREDNISONE [Suspect]
     Dosage: 350 MG, UNK
     Route: 048
     Dates: start: 20060707

REACTIONS (2)
  - FEBRILE NEUTROPENIA [None]
  - TUMOUR LYSIS SYNDROME [None]
